FAERS Safety Report 6822061-2 (Version None)
Quarter: 2010Q3

REPORT INFORMATION
  Report Type: 
  Country: None (occurrence: None)
  Receive Date: 20100708
  Receipt Date: 20100623
  Transmission Date: 20110219
  Serious: Yes (Hospitalization)
  Sender: FDA-Public Use
  Company Number: FR-BAYER-201030026GPV

PATIENT
  Age: 18 Year
  Sex: Female

DRUGS (4)
  1. SORAFENIB [Suspect]
     Indication: HEPATIC NEOPLASM MALIGNANT
     Dosage: 2 DAY'S DURATION
     Dates: start: 20100501
  2. ZOPHREN [Concomitant]
  3. GEMZAR [Concomitant]
     Route: 042
     Dates: start: 20100430, end: 20100430
  4. ELOXATIN [Concomitant]
     Route: 042
     Dates: start: 20100430, end: 20100430

REACTIONS (1)
  - TOXIC EPIDERMAL NECROLYSIS [None]
